FAERS Safety Report 19004134 (Version 2)
Quarter: 2021Q2

REPORT INFORMATION
  Report Type: Spontaneous
  Country: US (occurrence: US)
  Receive Date: 20210312
  Receipt Date: 20210423
  Transmission Date: 20210717
  Serious: Yes (Other)
  Sender: FDA-Public Use
  Company Number: US-ASTRAZENECA-2021A123965

PATIENT
  Age: 29845 Day
  Sex: Female
  Weight: 108 kg

DRUGS (7)
  1. FENOFIBRATE. [Concomitant]
     Active Substance: FENOFIBRATE
     Indication: BLOOD TRIGLYCERIDES INCREASED
  2. VICTOZA [Concomitant]
     Active Substance: LIRAGLUTIDE
     Indication: TYPE 2 DIABETES MELLITUS
  3. TRUSIBA [Concomitant]
     Indication: TYPE 2 DIABETES MELLITUS
  4. LASIX [Concomitant]
     Active Substance: FUROSEMIDE
  5. FENOFIBRATE. [Concomitant]
     Active Substance: FENOFIBRATE
     Indication: BLOOD CHOLESTEROL INCREASED
  6. SYMBICORT [Suspect]
     Active Substance: BUDESONIDE\FORMOTEROL FUMARATE DIHYDRATE
     Indication: CHRONIC OBSTRUCTIVE PULMONARY DISEASE
     Dosage: 160/4.5MCG 2 PUFFS, TWO TIMES A DAY
     Route: 055
  7. ELEQUIS [Concomitant]

REACTIONS (10)
  - Product packaging quantity issue [Unknown]
  - Peripheral artery occlusion [Unknown]
  - Device delivery system issue [Unknown]
  - Device malfunction [Unknown]
  - Pulmonary thrombosis [Recovered/Resolved]
  - Product label issue [Unknown]
  - Memory impairment [Unknown]
  - Peripheral arterial occlusive disease [Not Recovered/Not Resolved]
  - Product use issue [Unknown]
  - Wrong technique in device usage process [Unknown]

NARRATIVE: CASE EVENT DATE: 20210219
